FAERS Safety Report 4360828-3 (Version None)
Quarter: 2004Q2

REPORT INFORMATION
  Report Type: 
  Country: None (occurrence: None)
  Receive Date: 20040517
  Receipt Date: 20040511
  Transmission Date: 20050107
  Serious: Yes (Hospitalization)
  Sender: FDA-Public Use
  Company Number: A001-002-006057

PATIENT
  Age: 78 Year
  Sex: Male

DRUGS (8)
  1. ARICEPT [Suspect]
     Indication: VASCULAR DEMENTIA
     Dosage: 5 MG, 1 IN 1 D, ORAL; 10 MG, 1 IN 1 D, ORAL
     Route: 048
     Dates: start: 20020418, end: 20020501
  2. ARICEPT [Suspect]
     Indication: VASCULAR DEMENTIA
     Dosage: 5 MG, 1 IN 1 D, ORAL; 10 MG, 1 IN 1 D, ORAL
     Route: 048
     Dates: start: 20020501, end: 20020703
  3. LIPITOR [Concomitant]
  4. PRINIVIL [Concomitant]
  5. TIMOPTIC [Concomitant]
  6. HUMALOG [Concomitant]
  7. DIABETA [Concomitant]
  8. COUMADIN [Concomitant]

REACTIONS (9)
  - ASTHENIA [None]
  - CRYING [None]
  - DIARRHOEA [None]
  - FAECAL INCONTINENCE [None]
  - MOBILITY DECREASED [None]
  - MUSCLE RIGIDITY [None]
  - NAUSEA [None]
  - PARKINSON'S DISEASE [None]
  - PSYCHOMOTOR SKILLS IMPAIRED [None]
